FAERS Safety Report 5017927-2 (Version None)
Quarter: 2006Q2

REPORT INFORMATION
  Report Type: 
  Country: None (occurrence: None)
  Receive Date: 20060605
  Receipt Date: 20050418
  Transmission Date: 20061013
  Serious: Yes (Other)
  Sender: FDA-Public Use
  Company Number: 200511192JP

PATIENT
  Sex: Female

DRUGS (4)
  1. LASIX [Suspect]
     Route: 041
  2. DIPRIVAN [Suspect]
  3. ANAESTHETICS [Concomitant]
  4. ANTIBIOTICS [Concomitant]

REACTIONS (2)
  - ALANINE AMINOTRANSFERASE INCREASED [None]
  - ASPARTATE AMINOTRANSFERASE INCREASED [None]
